FAERS Safety Report 12562208 (Version 1)
Quarter: 2016Q3

REPORT INFORMATION
  Report Type: Spontaneous
  Country: US (occurrence: US)
  Receive Date: 20160715
  Receipt Date: 20160715
  Transmission Date: 20161109
  Serious: Yes (Other)
  Sender: FDA-Public Use
  Company Number: US-TEVA-676608USA

PATIENT
  Age: 65 Year
  Sex: Female

DRUGS (9)
  1. DITROPAN [Concomitant]
     Active Substance: OXYBUTYNIN CHLORIDE
  2. BACLOFEN. [Concomitant]
     Active Substance: BACLOFEN
  3. OYSTERCAL-D [Concomitant]
  4. VITAMIN D [Concomitant]
     Active Substance: CHOLECALCIFEROL
  5. MULTIVITAMIN [Concomitant]
     Active Substance: VITAMINS
  6. COPAXONE [Suspect]
     Active Substance: GLATIRAMER ACETATE
     Indication: MULTIPLE SCLEROSIS
     Route: 065
     Dates: start: 201404, end: 201607
  7. NEURONTIN [Concomitant]
     Active Substance: GABAPENTIN
  8. VITAMIN D [Concomitant]
     Active Substance: CHOLECALCIFEROL
  9. CALCIUM [Concomitant]
     Active Substance: CALCIUM

REACTIONS (1)
  - Multiple sclerosis relapse [Unknown]

NARRATIVE: CASE EVENT DATE: 20160621
